FAERS Safety Report 25809966 (Version 1)
Quarter: 2025Q3

REPORT INFORMATION
  Report Type: Spontaneous
  Country: CN (occurrence: CN)
  Receive Date: 20250917
  Receipt Date: 20250917
  Transmission Date: 20251021
  Serious: Yes (Hospitalization, Other)
  Sender: BAXTER
  Company Number: None

PATIENT
  Age: 69 Year
  Sex: Female
  Weight: 40 kg

DRUGS (6)
  1. CYCLOPHOSPHAMIDE [Suspect]
     Active Substance: CYCLOPHOSPHAMIDE
     Indication: Diffuse large B-cell lymphoma
     Dosage: 0.85 G, QD
     Route: 041
     Dates: start: 20250827, end: 20250827
  2. SODIUM CHLORIDE [Suspect]
     Active Substance: SODIUM CHLORIDE
     Dosage: 500 ML, QD, 0.9% (WITH CYCLOPHOSPHAMIDE)
     Route: 041
     Dates: start: 20250827, end: 20250827
  3. SODIUM CHLORIDE [Suspect]
     Active Substance: SODIUM CHLORIDE
     Dosage: 100 ML, QD, 0.9% (WITH EPIRUBICIN)
     Route: 041
     Dates: start: 20250827, end: 20250827
  4. SODIUM CHLORIDE [Suspect]
     Active Substance: SODIUM CHLORIDE
     Dosage: 60 ML, QD, 0.9% (WITH VINDESINE)
     Route: 041
     Dates: start: 20250827, end: 20250827
  5. EPIRUBICIN HYDROCHLORIDE [Suspect]
     Active Substance: EPIRUBICIN HYDROCHLORIDE
     Indication: Diffuse large B-cell lymphoma
     Dosage: 85 MG, QD
     Route: 041
     Dates: start: 20250827, end: 20250827
  6. VINDESINE SULFATE [Suspect]
     Active Substance: VINDESINE SULFATE
     Indication: Diffuse large B-cell lymphoma
     Dosage: 3.4 MG, QD
     Route: 041
     Dates: start: 20250827, end: 20250827

REACTIONS (2)
  - Myelosuppression [Recovering/Resolving]
  - Rhinorrhoea [Unknown]

NARRATIVE: CASE EVENT DATE: 20250908
